FAERS Safety Report 7267679-0 (Version None)
Quarter: 2011Q1

REPORT INFORMATION
  Report Type: 
  Country: None (occurrence: None)
  Receive Date: 20110121
  Receipt Date: 20110111
  Transmission Date: 20110831
  Serious: Yes (Other)
  Sender: FDA-Public Use
  Company Number: 025337

PATIENT
  Age: 21 Year
  Sex: Female

DRUGS (4)
  1. ACETAZOLAMIDE [Suspect]
     Indication: EPILEPSY
     Dosage: (125 MG NOCTE)
  2. CLONAZEPAM [Suspect]
     Indication: EPILEPSY
     Dosage: (1/2 X 0.5 MG (0.25 MG) AS NEEDED, USUALLY TABLET EVERY 3 DAYS)
  3. LEVETIRACETAM [Suspect]
     Indication: EPILEPSY
     Dosage: (250 MG BID)
  4. LAMOTRIGINE [Suspect]
     Indication: EPILEPSY
     Dosage: (100 MG / 125 MG)

REACTIONS (6)
  - GRAND MAL CONVULSION [None]
  - FEAR [None]
  - NERVOUSNESS [None]
  - SPEECH DISORDER [None]
  - FATIGUE [None]
  - MUSCLE TWITCHING [None]
